FAERS Safety Report 9931515 (Version 2)
Quarter: 2014Q1

REPORT INFORMATION
  Report Type: Spontaneous
  Country: CZ (occurrence: None)
  Receive Date: 20140224
  Receipt Date: 20140318
  Transmission Date: 20141002
  Serious: Yes (Other)
  Sender: FDA-Public Use
  Company Number: 2188762

PATIENT
  Age: 62 Year
  Sex: Male

DRUGS (1)
  1. OXALIPLATIN [Suspect]
     Indication: PRODUCT USED FOR UNKNOWN INDICATION
     Route: 042
     Dates: start: 20131204, end: 20131204

REACTIONS (4)
  - Erythema [None]
  - Oedema mucosal [None]
  - Headache [None]
  - Oedema [None]
